FAERS Safety Report 9286283 (Version 3)
Quarter: 2013Q2

REPORT INFORMATION
  Report Type: Spontaneous
  Country: GB (occurrence: None)
  Receive Date: 20130508
  Receipt Date: 20130620
  Transmission Date: 20140414
  Serious: Yes (Disabling)
  Sender: FDA-Public Use
  Company Number: AUR-APL-2013-03755

PATIENT
  Age: 72 Year
  Sex: Female

DRUGS (1)
  1. TERBINAFINE [Suspect]
     Indication: NAIL INFECTION
     Dosage: 1 A DAY, PO.
     Dates: start: 20130124, end: 20130320

REACTIONS (4)
  - Joint stiffness [None]
  - Musculoskeletal stiffness [None]
  - Arthralgia [None]
  - Myalgia [None]
